FAERS Safety Report 22256079 (Version 4)
Quarter: 2023Q4

REPORT INFORMATION
  Report Type: Spontaneous
  Country: US (occurrence: US)
  Receive Date: 20230426
  Receipt Date: 20231218
  Transmission Date: 20240110
  Serious: No
  Sender: FDA-Public Use
  Company Number: US-PFIZER INC-PV202300072717

PATIENT
  Age: 71 Year
  Sex: Female

DRUGS (1)
  1. XELJANZ XR [Suspect]
     Active Substance: TOFACITINIB CITRATE
     Dosage: 11 MG

REACTIONS (8)
  - Infection [Unknown]
  - Product dose omission issue [Unknown]
  - COVID-19 [Unknown]
  - Ear infection [Unknown]
  - Oral infection [Unknown]
  - Insomnia [Unknown]
  - Rash [Unknown]
  - Gingival swelling [Unknown]
